FAERS Safety Report 5007408-4 (Version None)
Quarter: 2006Q2

REPORT INFORMATION
  Report Type: 
  Country: None (occurrence: None)
  Receive Date: 20060517
  Receipt Date: 20060511
  Transmission Date: 20061013
  Serious: Yes (Other)
  Sender: FDA-Public Use
  Company Number: S06-USA-01830-01

PATIENT
  Age: 18 Year
  Sex: Female

DRUGS (3)
  1. LEXAPRO [Suspect]
     Dosage: 10 MG QD PO
     Route: 048
     Dates: start: 20060503, end: 20060510
  2. NEURONTIN [Concomitant]
  3. RITALIN [Concomitant]

REACTIONS (1)
  - CONVULSION [None]
